FAERS Safety Report 7245502-8 (Version None)
Quarter: 2011Q1

REPORT INFORMATION
  Report Type: 
  Country: None (occurrence: None)
  Receive Date: 20110126
  Receipt Date: 20110117
  Transmission Date: 20110831
  Serious: Yes (Hospitalization, Other)
  Sender: FDA-Public Use
  Company Number: JP-CELGENEUS-087-21880-11011446

PATIENT
  Sex: Male

DRUGS (11)
  1. KOBALNON [Concomitant]
     Indication: PROPHYLAXIS
     Route: 048
     Dates: end: 20110105
  2. BAKTAR [Concomitant]
     Indication: PROPHYLAXIS
     Route: 048
     Dates: end: 20110105
  3. FLOMOX [Concomitant]
     Indication: PROPHYLAXIS
     Route: 048
     Dates: end: 20110105
  4. ASPIRIN [Concomitant]
     Indication: PROPHYLAXIS
     Route: 048
     Dates: end: 20110105
  5. REVLIMID [Suspect]
     Indication: MULTIPLE MYELOMA
     Route: 048
     Dates: start: 20101209, end: 20101229
  6. AMLODIPINE [Concomitant]
     Indication: HYPERTENSION
     Route: 048
     Dates: end: 20110105
  7. FLUCONAZOLE [Concomitant]
     Indication: PROPHYLAXIS
     Route: 048
     Dates: end: 20110105
  8. LOXONIN [Concomitant]
     Route: 048
     Dates: end: 20110105
  9. VALTREX [Concomitant]
     Indication: PROPHYLAXIS
     Route: 048
     Dates: end: 20110105
  10. DUROTEP [Concomitant]
     Route: 062
     Dates: end: 20110105
  11. BROTIZOLAM [Concomitant]
     Route: 048
     Dates: end: 20110105

REACTIONS (4)
  - HAEMOGLOBIN DECREASED [None]
  - THROMBOCYTOPENIA [None]
  - GASTROINTESTINAL INFECTION [None]
  - INFLAMMATION [None]
